FAERS Safety Report 21370141 (Version 2)
Quarter: 2022Q3

REPORT INFORMATION
  Report Type: Spontaneous
  Country: KR (occurrence: KR)
  Receive Date: 20220923
  Receipt Date: 20220927
  Transmission Date: 20221027
  Serious: No
  Sender: FDA-Public Use
  Company Number: KR-BAYER-2022P014973

PATIENT
  Sex: Female

DRUGS (1)
  1. MIRENA [Suspect]
     Active Substance: LEVONORGESTREL
     Dosage: 20?G/DAY
     Route: 015
     Dates: start: 2017, end: 2022

REACTIONS (2)
  - Device physical property issue [None]
  - Complication of device removal [None]

NARRATIVE: CASE EVENT DATE: 20220101
